FAERS Safety Report 9367563 (Version 1)
Quarter: 2013Q2

REPORT INFORMATION
  Report Type: Spontaneous
  Country: US (occurrence: US)
  Receive Date: 20130625
  Receipt Date: 20130625
  Transmission Date: 20140414
  Serious: No
  Sender: FDA-Public Use
  Company Number: US-ASTELLAS-2012US006170

PATIENT
  Age: 51 Year
  Sex: Female

DRUGS (1)
  1. VESICARE [Suspect]
     Indication: MICTURITION URGENCY
     Dosage: 5 MG, AS NEEDED
     Route: 048
     Dates: start: 20120509

REACTIONS (5)
  - Inappropriate schedule of drug administration [Unknown]
  - Erythema [Unknown]
  - Aphonia [Unknown]
  - Swelling face [Recovering/Resolving]
  - Fatigue [Unknown]
